FAERS Safety Report 24638056 (Version 1)
Quarter: 2024Q4

REPORT INFORMATION
  Report Type: Report from Study
  Country: IT (occurrence: IT)
  Receive Date: 20241119
  Receipt Date: 20241119
  Transmission Date: 20250115
  Serious: Yes (Death, Other)
  Sender: TAKEDA
  Company Number: IT-TAKEDA-2024TUS116328

PATIENT
  Age: 59 Year
  Sex: Female

DRUGS (8)
  1. TEDUGLUTIDE [Suspect]
     Active Substance: TEDUGLUTIDE
     Indication: Short-bowel syndrome
     Dosage: UNK
  2. TEDUGLUTIDE [Suspect]
     Active Substance: TEDUGLUTIDE
  3. TEDUGLUTIDE [Suspect]
     Active Substance: TEDUGLUTIDE
  4. TEDUGLUTIDE [Suspect]
     Active Substance: TEDUGLUTIDE
  5. Epaviten [Concomitant]
     Indication: Vitamin supplementation
     Dosage: UNK UNK, MONTHLY
     Dates: start: 20230704
  6. Levotirsol [Concomitant]
     Indication: Hypothyroidism
     Dosage: 288 MICROGRAM, QD
     Dates: start: 20221217, end: 20230307
  7. Levotirsol [Concomitant]
     Dosage: 300 MICROGRAM, QD
     Dates: start: 20230308
  8. APIXABAN [Concomitant]
     Active Substance: APIXABAN
     Indication: Thrombosis prophylaxis
     Dosage: UNK UNK, BID
     Dates: start: 20210325

REACTIONS (1)
  - Lung neoplasm malignant [Fatal]

NARRATIVE: CASE EVENT DATE: 20240412
